FAERS Safety Report 19399140 (Version 3)
Quarter: 2021Q3

REPORT INFORMATION
  Report Type: Spontaneous
  Country: SE (occurrence: SE)
  Receive Date: 20210610
  Receipt Date: 20210909
  Transmission Date: 20211014
  Serious: Yes (Death, Hospitalization, Other)
  Sender: FDA-Public Use
  Company Number: SE-BRISTOL-MYERS SQUIBB COMPANY-BMS-2021-054974

PATIENT
  Age: 67 Year
  Sex: Male

DRUGS (2)
  1. AMLODIPINE [Concomitant]
     Active Substance: AMLODIPINE BESYLATE
     Indication: HYPERTENSION
     Dosage: 10 MILLIGRAM
     Route: 048
     Dates: start: 20210317
  2. NIVOLUMAB [Suspect]
     Active Substance: NIVOLUMAB
     Indication: MALIGNANT MELANOMA
     Dosage: 480 MILLIGRAM, EVERY 4 TH WEEK FIXED DOSE
     Route: 042
     Dates: start: 20210218

REACTIONS (5)
  - Gastrointestinal disorder [Unknown]
  - Necrotising oesophagitis [Fatal]
  - Ketoacidosis [Unknown]
  - Blood glucose increased [Unknown]
  - Treatment noncompliance [Unknown]
